FAERS Safety Report 16322859 (Version 2)
Quarter: 2024Q1

REPORT INFORMATION
  Report Type: Spontaneous
  Country: US (occurrence: US)
  Receive Date: 20190516
  Receipt Date: 20240304
  Transmission Date: 20240409
  Serious: No
  Sender: FDA-Public Use
  Company Number: US-JNJFOC-20190505428

PATIENT
  Sex: Male

DRUGS (2)
  1. RISPERDAL [Suspect]
     Active Substance: RISPERIDONE
     Indication: Agitation
     Route: 048
     Dates: start: 2002, end: 2007
  2. RISPERDAL [Suspect]
     Active Substance: RISPERIDONE
     Indication: Psychotic disorder

REACTIONS (3)
  - Gynaecomastia [Unknown]
  - Weight increased [Unknown]
  - Emotional disorder [Unknown]
